FAERS Safety Report 5988362-5 (Version None)
Quarter: 2008Q4

REPORT INFORMATION
  Report Type: 
  Country: None (occurrence: None)
  Receive Date: 20081204
  Receipt Date: 20081120
  Transmission Date: 20090506
  Serious: Yes (Hospitalization)
  Sender: FDA-Public Use
  Company Number: CIO08019415

PATIENT
  Age: 76 Year

DRUGS (3)
  1. NYQUIL COLD/FLU, ALCOHOL 10% PSEUDOEPHEDRINE FREE, CHERRY FLVR(PARACET [Suspect]
     Indication: OROPHARYNGEAL PAIN
     Dosage: 30ML, 1/DAY FOR 1/DAY, ORAL; 15ML, 1/DAY FOR 1 DAY, ORAL
     Route: 048
     Dates: start: 20081114, end: 20081114
  2. NYQUIL COLD/FLU, ALCOHOL 10% PSEUDOEPHEDRINE FREE, CHERRY FLVR(PARACET [Suspect]
     Indication: OROPHARYNGEAL PAIN
     Dosage: 30ML, 1/DAY FOR 1/DAY, ORAL; 15ML, 1/DAY FOR 1 DAY, ORAL
     Route: 048
     Dates: start: 20081115, end: 20081115
  3. COUMADIN [Concomitant]

REACTIONS (9)
  - CHEST PAIN [None]
  - DIZZINESS [None]
  - DYSPNOEA [None]
  - ELECTROCARDIOGRAM ABNORMAL [None]
  - EMPHYSEMA [None]
  - EYE DISORDER [None]
  - HYPOVENTILATION [None]
  - THROMBOSIS [None]
  - UNRESPONSIVE TO STIMULI [None]
